FAERS Safety Report 13583552 (Version 1)
Quarter: 2017Q2

REPORT INFORMATION
  Report Type: Other
  Country: IT (occurrence: IT)
  Receive Date: 20170526
  Receipt Date: 20170526
  Transmission Date: 20170830
  Serious: Yes (Hospitalization)
  Sender: FDA-Public Use
  Company Number: IT-ORCHID HEALTHCARE-2021262

PATIENT
  Age: 52 Year
  Sex: Female

DRUGS (1)
  1. OLANZAPINE. [Suspect]
     Active Substance: OLANZAPINE
     Route: 030

REACTIONS (5)
  - Miosis [Recovering/Resolving]
  - Sinus tachycardia [Recovering/Resolving]
  - Somnolence [Recovering/Resolving]
  - Coma [Recovering/Resolving]
  - Post-injection delirium sedation syndrome [Recovering/Resolving]
